FAERS Safety Report 25459449 (Version 1)
Quarter: 2025Q2

REPORT INFORMATION
  Report Type: Spontaneous
  Country: US (occurrence: US)
  Receive Date: 20250620
  Receipt Date: 20250620
  Transmission Date: 20250717
  Serious: No
  Sender: APOTEX
  Company Number: US-APOTEX-2025AP008074

PATIENT
  Sex: Male

DRUGS (1)
  1. TEMOZOLOMIDE [Suspect]
     Active Substance: TEMOZOLOMIDE
     Indication: Glioblastoma
     Route: 065
     Dates: start: 2022, end: 2022

REACTIONS (3)
  - Abnormal loss of weight [Unknown]
  - Fatigue [Unknown]
  - Constipation [Unknown]

NARRATIVE: CASE EVENT DATE: 20220101
